FAERS Safety Report 9374007 (Version 1)
Quarter: 2013Q2

REPORT INFORMATION
  Report Type: Spontaneous
  Country: GB (occurrence: GB)
  Receive Date: 20130628
  Receipt Date: 20130628
  Transmission Date: 20140414
  Serious: Yes (Other)
  Sender: FDA-Public Use
  Company Number: GB-ASTRAZENECA-2013SE47543

PATIENT
  Age: 81 Year
  Sex: Female

DRUGS (7)
  1. OMEPRAZOLE [Suspect]
     Route: 048
     Dates: end: 20130607
  2. FUROSEMIDE [Suspect]
     Route: 065
  3. ASPIRIN [Concomitant]
  4. BISOPROLOL [Concomitant]
  5. DOXAZOSIN [Concomitant]
  6. LISINOPRIL [Concomitant]
  7. METFORMIN [Concomitant]

REACTIONS (2)
  - Hypocalcaemia [Unknown]
  - Hypomagnesaemia [Recovered/Resolved]
